FAERS Safety Report 4679326-2 (Version None)
Quarter: 2005Q2

REPORT INFORMATION
  Report Type: 
  Country: None (occurrence: None)
  Receive Date: 20050531
  Receipt Date: 20050519
  Transmission Date: 20051028
  Serious: Yes (Life-Threatening, Hospitalization)
  Sender: FDA-Public Use
  Company Number: B0375739A

PATIENT
  Age: 36 Year
  Sex: Male
  Weight: 79.8331 kg

DRUGS (8)
  1. ZOFRAN [Suspect]
     Indication: POST PROCEDURAL NAUSEA
     Dosage: 4 MG/ SINGLE DOSE/INTRAVENOUS
     Route: 042
     Dates: start: 20050221, end: 20050221
  2. SUXAMETHONIUM [Concomitant]
  3. THIOPENTONE SODIUM [Concomitant]
  4. DESFLURANE [Concomitant]
  5. SUFENTANIL CITRATE [Concomitant]
  6. ROPIVACIANE HCL [Concomitant]
  7. PAROXETINE HYDROCHLORIDE [Concomitant]
  8. ACAMPROSATE [Concomitant]

REACTIONS (6)
  - ATRIAL FIBRILLATION [None]
  - BRADYCARDIA [None]
  - CARDIAC ARREST [None]
  - TORSADE DE POINTES [None]
  - VENTRICULAR FIBRILLATION [None]
  - VENTRICULAR HYPOKINESIA [None]
